FAERS Safety Report 24384409 (Version 1)
Quarter: 2024Q4

REPORT INFORMATION
  Report Type: Report from Study
  Country: US (occurrence: US)
  Receive Date: 20241001
  Receipt Date: 20241001
  Transmission Date: 20250114
  Serious: Yes (Hospitalization)
  Sender: ALNYLAM PHARMACEUTICALS
  Company Number: US-ALNYLAM PHARMACEUTICALS, INC.-ALN-2024-005267

PATIENT

DRUGS (2)
  1. GIVLAARI [Suspect]
     Active Substance: GIVOSIRAN SODIUM
     Indication: Porphyria
     Dosage: UNK
     Route: 065
     Dates: start: 20240517, end: 20240517
  2. GIVLAARI [Suspect]
     Active Substance: GIVOSIRAN SODIUM
     Dosage: UNK
     Route: 065
     Dates: start: 20240809, end: 20240809

REACTIONS (8)
  - Nausea [Unknown]
  - Abdominal pain upper [Unknown]
  - Blood homocysteine increased [Recovering/Resolving]
  - Fatigue [Unknown]
  - Hepatic enzyme increased [Recovering/Resolving]
  - Rash [Unknown]
  - Injection site erythema [Unknown]
  - Pain [Unknown]

NARRATIVE: CASE EVENT DATE: 20240801
